FAERS Safety Report 5332549-1 (Version None)
Quarter: 2007Q2

REPORT INFORMATION
  Report Type: 
  Country: None (occurrence: None)
  Receive Date: 20070523
  Receipt Date: 20070518
  Transmission Date: 20071010
  Serious: Yes (Death)
  Sender: FDA-Public Use
  Company Number: BR-BRISTOL-MYERS SQUIBB COMPANY-13786967

PATIENT
  Age: 19 Year
  Sex: Female

DRUGS (10)
  1. ABILIFY [Suspect]
     Indication: BORDERLINE PERSONALITY DISORDER
     Route: 048
     Dates: start: 20070401, end: 20070511
  2. ABILIFY [Suspect]
     Indication: DEPRESSION
     Route: 048
     Dates: start: 20070401, end: 20070511
  3. ABILIFY [Suspect]
     Indication: PROMISCUITY
     Route: 048
     Dates: start: 20070401, end: 20070511
  4. ABILIFY [Suspect]
     Indication: DYSKINESIA
     Route: 048
     Dates: start: 20070401, end: 20070511
  5. TOPIRAMATE [Concomitant]
     Route: 048
     Dates: start: 20070401, end: 20070511
  6. TOPIRAMATE [Concomitant]
     Route: 048
     Dates: start: 20060101, end: 20070401
  7. DEPAKOTE [Concomitant]
     Route: 048
     Dates: start: 20070401, end: 20070511
  8. PAROXETINE [Concomitant]
     Route: 048
     Dates: start: 20060101
  9. NEXIUM [Concomitant]
     Route: 048
  10. NATURETTI [Concomitant]
     Indication: CONSTIPATION
     Route: 048

REACTIONS (3)
  - MULTI-ORGAN FAILURE [None]
  - PULMONARY OEDEMA [None]
  - TREMOR [None]
